FAERS Safety Report 5207205-0 (Version None)
Quarter: 2007Q1

REPORT INFORMATION
  Report Type: 
  Country: None (occurrence: None)
  Receive Date: 20070112
  Receipt Date: 20070108
  Transmission Date: 20070707
  Serious: Yes (Life-Threatening)
  Sender: FDA-Public Use
  Company Number: FR-GLAXOSMITHKLINE-B0453196A

PATIENT
  Age: 45 Year
  Sex: Female

DRUGS (9)
  1. TRACRIUM [Suspect]
     Indication: ANAESTHESIA
     Route: 042
     Dates: start: 20061018, end: 20061018
  2. CEFACIDAL [Suspect]
     Indication: ANAESTHESIA
     Route: 042
     Dates: start: 20061018, end: 20061018
  3. DIPRIVAN [Suspect]
     Indication: ANAESTHESIA
     Route: 042
     Dates: start: 20061018, end: 20061018
  4. SUFENTA [Suspect]
     Indication: ANAESTHESIA
     Route: 042
     Dates: start: 20061018, end: 20061018
  5. BLEU PATENTE [Suspect]
     Indication: ANAESTHESIA
     Route: 065
     Dates: start: 20061018, end: 20061018
  6. ACUPAN [Suspect]
     Indication: ANAESTHESIA
     Route: 042
     Dates: start: 20061018, end: 20061018
  7. SEVORANE [Suspect]
     Route: 065
     Dates: start: 20061018
  8. KETOPROFEN [Concomitant]
     Route: 065
     Dates: start: 20061018
  9. PERFALGAN [Concomitant]
     Route: 065
     Dates: start: 20061018

REACTIONS (6)
  - ANAPHYLACTIC SHOCK [None]
  - CARBON DIOXIDE DECREASED [None]
  - CIRCULATORY COLLAPSE [None]
  - FACE OEDEMA [None]
  - RASH [None]
  - SINUS TACHYCARDIA [None]
